FAERS Safety Report 5729587-3 (Version None)
Quarter: 2008Q2

REPORT INFORMATION
  Report Type: 
  Country: None (occurrence: None)
  Receive Date: 20080506
  Receipt Date: 20080505
  Transmission Date: 20081010
  Serious: Yes (Life-Threatening, Hospitalization)
  Sender: FDA-Public Use
  Company Number: DE-MERCK-0802DEU00111

PATIENT
  Age: 20 Year
  Sex: Male
  Weight: 69 kg

DRUGS (1)
  1. PROPECIA [Suspect]
     Route: 048
     Dates: start: 20070101, end: 20080217

REACTIONS (3)
  - CEREBRAL CYST [None]
  - GROIN PAIN [None]
  - INTRACRANIAL VENOUS SINUS THROMBOSIS [None]
